FAERS Safety Report 5387750-8 (Version None)
Quarter: 2007Q3

REPORT INFORMATION
  Report Type: 
  Country: None (occurrence: None)
  Receive Date: 20070716
  Receipt Date: 20070712
  Transmission Date: 20080115
  Serious: Yes (Other)
  Sender: FDA-Public Use
  Company Number: B0478927A

PATIENT
  Age: 10 Year
  Sex: Male

DRUGS (1)
  1. ZENTEL [Suspect]
     Indication: DRUG USE FOR UNKNOWN INDICATION
     Dosage: 2TABS PER DAY
     Route: 048
     Dates: start: 20070709, end: 20070710

REACTIONS (3)
  - ANAPHYLACTIC REACTION [None]
  - PRURITUS GENERALISED [None]
  - RASH GENERALISED [None]
